FAERS Safety Report 24451978 (Version 2)
Quarter: 2024Q4

REPORT INFORMATION
  Report Type: Spontaneous
  Country: US (occurrence: US)
  Receive Date: 20241017
  Receipt Date: 20241021
  Transmission Date: 20250114
  Serious: No
  Sender: PFIZER
  Company Number: US-PFIZER INC-202400278388

PATIENT
  Age: 32 Year
  Sex: Female

DRUGS (1)
  1. EUCRISA [Suspect]
     Active Substance: CRISABOROLE
     Dosage: 2 %

REACTIONS (2)
  - Eczema [Not Recovered/Not Resolved]
  - Eczema eyelids [Not Recovered/Not Resolved]
